FAERS Safety Report 11942885 (Version 1)
Quarter: 2016Q1

REPORT INFORMATION
  Report Type: Spontaneous
  Country: US (occurrence: US)
  Receive Date: 20160125
  Receipt Date: 20160125
  Transmission Date: 20160526
  Serious: No
  Sender: FDA-Public Use
  Company Number: US-UNITED THERAPEUTICS-UNT-2015-007777

PATIENT
  Sex: Female
  Weight: 81.63 kg

DRUGS (4)
  1. ADCIRCA [Concomitant]
     Active Substance: TADALAFIL
     Indication: PRODUCT USED FOR UNKNOWN INDICATION
  2. LETAIRIS [Concomitant]
     Active Substance: AMBRISENTAN
     Indication: PRODUCT USED FOR UNKNOWN INDICATION
  3. REMODULIN [Suspect]
     Active Substance: TREPROSTINIL
     Dosage: UNK
  4. REMODULIN [Suspect]
     Active Substance: TREPROSTINIL
     Indication: PULMONARY ARTERIAL HYPERTENSION
     Dosage: 0.070 ?G/KG/MIN, CONTINUING
     Route: 041
     Dates: start: 20130816

REACTIONS (9)
  - Anxiety [Unknown]
  - Fatigue [Unknown]
  - Vision blurred [Unknown]
  - Drug dose omission [Unknown]
  - Flushing [Unknown]
  - Arthralgia [Unknown]
  - Device occlusion [Unknown]
  - Headache [Unknown]
  - Device issue [Recovered/Resolved]
